FAERS Safety Report 9107234 (Version 1)
Quarter: 2013Q1

REPORT INFORMATION
  Report Type: Spontaneous
  Country: US (occurrence: US)
  Receive Date: 20130221
  Receipt Date: 20130221
  Transmission Date: 20140127
  Serious: Yes (Hospitalization, Other)
  Sender: FDA-Public Use
  Company Number: US-RB-014096-10

PATIENT
  Age: 0 None
  Sex: Female
  Weight: 3.9 kg

DRUGS (3)
  1. SUBOXONE [Suspect]
     Indication: DRUG DEPENDENCE
     Route: 064
     Dates: start: 200906, end: 200911
  2. SUBOXONE [Suspect]
     Route: 063
     Dates: start: 20100702
  3. SUBUTEX [Suspect]
     Indication: DRUG DEPENDENCE
     Route: 064
     Dates: start: 200911, end: 20100702

REACTIONS (3)
  - Foetal exposure during pregnancy [Recovered/Resolved]
  - Exposure during breast feeding [Not Recovered/Not Resolved]
  - Jaundice neonatal [Recovered/Resolved]
